FAERS Safety Report 16599984 (Version 1)
Quarter: 2019Q3

REPORT INFORMATION
  Report Type: Spontaneous
  Country: FR (occurrence: FR)
  Receive Date: 20190720
  Receipt Date: 20190720
  Transmission Date: 20191004
  Serious: Yes (Other)
  Sender: FDA-Public Use
  Company Number: FR-AXELLIA-002577

PATIENT
  Age: 72 Year
  Sex: Male
  Weight: 64 kg

DRUGS (13)
  1. PIPERACILLIN. [Concomitant]
     Active Substance: PIPERACILLIN SODIUM
     Indication: STAPHYLOCOCCAL SEPSIS
  2. EZETIMIBE. [Concomitant]
     Active Substance: EZETIMIBE
     Indication: STAPHYLOCOCCAL SEPSIS
  3. PLAVIX [Concomitant]
     Active Substance: CLOPIDOGREL BISULFATE
     Dosage: STRENGTH 75 MG
  4. GLUCOPHAGE [Concomitant]
     Active Substance: METFORMIN HYDROCHLORIDE
     Indication: STAPHYLOCOCCAL SEPSIS
     Dosage: STRENGTH 850 MG
  5. PANTOPRAZOLE [Concomitant]
     Active Substance: PANTOPRAZOLE
     Indication: STAPHYLOCOCCAL SEPSIS
  6. TAZOBACTAM/TAZOBACTAM SODIUM [Concomitant]
     Indication: STAPHYLOCOCCAL SEPSIS
  7. ELIQUIS [Concomitant]
     Active Substance: APIXABAN
     Indication: STAPHYLOCOCCAL SEPSIS
  8. KARDEGIC [Concomitant]
     Active Substance: ASPIRIN DL-LYSINE
     Indication: STAPHYLOCOCCAL SEPSIS
     Dosage: STRENGTH 160 MG POWDER FOR ORAL SOLUTION IN SACHET
  9. SPIRONOLACTONE. [Concomitant]
     Active Substance: SPIRONOLACTONE
     Indication: STAPHYLOCOCCAL SEPSIS
  10. RAMIPRIL. [Concomitant]
     Active Substance: RAMIPRIL
     Indication: STAPHYLOCOCCAL SEPSIS
  11. DAPTOMYCIN. [Suspect]
     Active Substance: DAPTOMYCIN
     Indication: STAPHYLOCOCCAL SEPSIS
     Route: 042
     Dates: start: 20190528, end: 20190605
  12. BISOCE [Concomitant]
     Active Substance: BISOPROLOL
     Indication: STAPHYLOCOCCAL SEPSIS
     Dosage: STRENGTH 2.5 MG
  13. TAHOR [Concomitant]
     Active Substance: ATORVASTATIN CALCIUM
     Indication: STAPHYLOCOCCAL SEPSIS
     Dosage: STRENGTH 40 MG

REACTIONS (1)
  - Interstitial lung disease [Not Recovered/Not Resolved]

NARRATIVE: CASE EVENT DATE: 20190605
